FAERS Safety Report 10306326 (Version 1)
Quarter: 2014Q3

REPORT INFORMATION
  Report Type: Spontaneous
  Country: PT (occurrence: PT)
  Receive Date: 20140715
  Receipt Date: 20140715
  Transmission Date: 20150326
  Serious: Yes (Other)
  Sender: FDA-Public Use
  Company Number: PT-PFIZER INC-2014190454

PATIENT
  Age: 67 Year
  Sex: Female

DRUGS (3)
  1. PREDNISONE. [Suspect]
     Active Substance: PREDNISONE
     Dosage: 5 MG, UNK
  2. SALAZOPIRINA EN [Suspect]
     Active Substance: SULFASALAZINE
     Dosage: 500 MG, UNK
     Dates: start: 20110829
  3. TOCILIZUMAB [Suspect]
     Active Substance: TOCILIZUMAB

REACTIONS (1)
  - Cystitis [Unknown]

NARRATIVE: CASE EVENT DATE: 20131129
